FAERS Safety Report 25306149 (Version 3)
Quarter: 2025Q2

REPORT INFORMATION
  Report Type: Report from Study
  Country: PT (occurrence: PT)
  Receive Date: 20250513
  Receipt Date: 20250605
  Transmission Date: 20250717
  Serious: Yes (Other)
  Sender: VIIV
  Company Number: None

PATIENT

DRUGS (2)
  1. CABOTEGRAVIR [Suspect]
     Active Substance: CABOTEGRAVIR
     Indication: HIV infection
     Route: 030
     Dates: start: 20250217, end: 20250217
  2. RILPIVIRINE [Suspect]
     Active Substance: RILPIVIRINE
     Indication: HIV infection
     Route: 030
     Dates: start: 20250217, end: 20250217

REACTIONS (10)
  - Pyrexia [Recovered/Resolved]
  - Injection site pain [Recovered/Resolved]
  - Injection site discomfort [Recovered/Resolved]
  - Skin induration [Recovered/Resolved]
  - Injection site oedema [Recovered/Resolved]
  - Injection site pain [Recovered/Resolved]
  - Dry mouth [Recovered/Resolved]
  - Malaise [Recovered/Resolved]
  - Injection site haematoma [Recovered/Resolved]
  - Erectile dysfunction [Not Recovered/Not Resolved]

NARRATIVE: CASE EVENT DATE: 20250218
